FAERS Safety Report 4281131-6 (Version None)
Quarter: 2004Q1

REPORT INFORMATION
  Report Type: 
  Country: None (occurrence: None)
  Receive Date: 20040107
  Receipt Date: 20030605
  Transmission Date: 20041129
  Serious: Yes (Other)
  Sender: FDA-Public Use
  Company Number: 2003025698

PATIENT
  Sex: Male

DRUGS (1)
  1. PENICILLIN G PROCAINE [Suspect]
     Indication: ILL-DEFINED DISORDER

REACTIONS (2)
  - ANAPHYLACTIC REACTION [None]
  - CONVULSION [None]
